FAERS Safety Report 16769399 (Version 2)
Quarter: 2019Q4

REPORT INFORMATION
  Report Type: Not Available
  Country: US (occurrence: US)
  Receive Date: 20190903
  Receipt Date: 20191001
  Transmission Date: 20200122
  Serious: Yes (Hospitalization)
  Sender: FDA-Public Use
  Company Number: US-NEUROCRINE BIOSCIENCES INC.-2019NBI02425

PATIENT
  Sex: Male

DRUGS (11)
  1. VALIUM [Concomitant]
     Active Substance: DIAZEPAM
  2. ABILIFY [Concomitant]
     Active Substance: ARIPIPRAZOLE
  3. ATARAX [Concomitant]
     Active Substance: HYDROXYZINE HYDROCHLORIDE
  4. INGREZZA [Suspect]
     Active Substance: VALBENAZINE
     Indication: TARDIVE DYSKINESIA
     Route: 048
     Dates: start: 20170914, end: 20170921
  5. BACLOFEN. [Concomitant]
     Active Substance: BACLOFEN
  6. CLOMIPRAMINE [Concomitant]
     Active Substance: CLOMIPRAMINE
  7. INGREZZA [Suspect]
     Active Substance: VALBENAZINE
     Route: 048
     Dates: start: 20170922, end: 201908
  8. TRAZODONE [Concomitant]
     Active Substance: TRAZODONE HYDROCHLORIDE
  9. CLONIDINE. [Concomitant]
     Active Substance: CLONIDINE
  10. ZYPREXA [Concomitant]
     Active Substance: OLANZAPINE
  11. GABAPENTIN. [Concomitant]
     Active Substance: GABAPENTIN

REACTIONS (1)
  - Hallucination, auditory [Recovered/Resolved]
